FAERS Safety Report 23831430 (Version 1)
Quarter: 2024Q2

REPORT INFORMATION
  Report Type: Other
  Country: US (occurrence: None)
  Receive Date: 20240508
  Receipt Date: 20240508
  Transmission Date: 20240715
  Serious: No
  Sender: FDA-Public Use
  Company Number: US-ROCHE-3559471

PATIENT
  Age: 40 Year
  Sex: Female
  Weight: 102.15 kg

DRUGS (6)
  1. OCREVUS [Suspect]
     Active Substance: OCRELIZUMAB
     Indication: Relapsing-remitting multiple sclerosis
     Route: 042
     Dates: start: 20210709
  2. OCREVUS [Suspect]
     Active Substance: OCRELIZUMAB
     Dosage: DATE OF MOST RECENT INFUSION: 23/SEP/2021, 08/MAR/2022, 04/OCT/2022, 05/APR/2023, 06/OCT/2023, 06/MA
     Route: 042
     Dates: start: 20210908
  3. OCREVUS [Suspect]
     Active Substance: OCRELIZUMAB
     Dosage: TWICE A YEAR
     Route: 042
  4. CLARITIN [Concomitant]
     Active Substance: LORATADINE
     Indication: Seasonal allergy
  5. BIOTIN [Concomitant]
     Active Substance: BIOTIN
     Route: 048
  6. TECFIDERA [Concomitant]
     Active Substance: DIMETHYL FUMARATE

REACTIONS (2)
  - COVID-19 [Recovered/Resolved]
  - Vitamin D decreased [Unknown]

NARRATIVE: CASE EVENT DATE: 20231101
